FAERS Safety Report 11320870 (Version 1)
Quarter: 2015Q3

REPORT INFORMATION
  Report Type: Spontaneous
  Country: US (occurrence: US)
  Receive Date: 20150729
  Receipt Date: 20150729
  Transmission Date: 20151125
  Serious: No
  Sender: FDA-Public Use
  Company Number: US-TEVA-582020ACC

PATIENT

DRUGS (1)
  1. TAKE ACTION [Suspect]
     Active Substance: LEVONORGESTREL
     Dosage: 1.5 MILLIGRAM DAILY; MATERNAL DOSE: 1.5 MG
     Route: 063
     Dates: start: 20150721, end: 20150721

REACTIONS (2)
  - Exposure during breast feeding [Unknown]
  - Vomiting [Unknown]

NARRATIVE: CASE EVENT DATE: 20150721
